FAERS Safety Report 18101606 (Version 1)
Quarter: 2020Q3

REPORT INFORMATION
  Report Type: Spontaneous
  Country: US (occurrence: US)
  Receive Date: 20200801
  Receipt Date: 20200801
  Transmission Date: 20201103
  Serious: Yes (Other)
  Sender: FDA-Public Use
  Company Number: US-SA-2020SA196385

PATIENT

DRUGS (1)
  1. LANTUS SOLOSTAR [Suspect]
     Active Substance: INSULIN GLARGINE
     Indication: TYPE 2 DIABETES MELLITUS
     Dosage: 20 IU,HS(A NIGHT BEFORE BEDTIME)
     Route: 065

REACTIONS (3)
  - Cough [Unknown]
  - Blindness [Unknown]
  - Wrong technique in device usage process [Unknown]
